FAERS Safety Report 15661509 (Version 4)
Quarter: 2019Q1

REPORT INFORMATION
  Report Type: Report from Study
  Country: ID (occurrence: ID)
  Receive Date: 20181127
  Receipt Date: 20190215
  Transmission Date: 20190417
  Serious: Yes (Death, Other)
  Sender: FDA-Public Use
  Company Number: ID-ASTRAZENECA-2018SF54659

PATIENT
  Age: 23408 Day
  Sex: Male

DRUGS (2)
  1. IRESSA [Suspect]
     Active Substance: GEFITINIB
     Route: 048
  2. TAGRISSO [Suspect]
     Active Substance: OSIMERTINIB
     Indication: LUNG ADENOCARCINOMA STAGE IV
     Route: 048
     Dates: start: 20180814, end: 20181115

REACTIONS (7)
  - Cardiac dysfunction [Fatal]
  - Drug resistance [Fatal]
  - Carbohydrate antigen 125 increased [Fatal]
  - Loss of consciousness [Fatal]
  - Pulmonary function test decreased [Fatal]
  - Tumour marker abnormal [Fatal]
  - Dyspnoea [Fatal]

NARRATIVE: CASE EVENT DATE: 20190113
